FAERS Safety Report 12995854 (Version 1)
Quarter: 2016Q4

REPORT INFORMATION
  Report Type: Spontaneous
  Country: US (occurrence: US)
  Receive Date: 20161202
  Receipt Date: 20161202
  Transmission Date: 20170207
  Serious: Yes (Hospitalization, Disabling)
  Sender: FDA-Public Use
  Company Number: US-SAGENTPRD-2016-US-000081

PATIENT
  Age: 8 Year
  Sex: 0

DRUGS (5)
  1. IFOSFAMIDE. [Concomitant]
     Active Substance: IFOSFAMIDE
  2. METHOTREXATE. [Concomitant]
     Active Substance: METHOTREXATE
  3. CISPLATIN. [Concomitant]
     Active Substance: CISPLATIN
  4. DOXORUBICIN HYDROCHLORIDE INJECTION, USP [Suspect]
     Active Substance: DOXORUBICIN HYDROCHLORIDE
     Dosage: UNKNOWN
  5. ETOPOSIDE. [Concomitant]
     Active Substance: ETOPOSIDE

REACTIONS (6)
  - Pain [Recovered/Resolved with Sequelae]
  - Pyrexia [Recovered/Resolved with Sequelae]
  - Skin ulcer [Recovered/Resolved with Sequelae]
  - Recall phenomenon [Recovered/Resolved with Sequelae]
  - Skin necrosis [Recovered/Resolved with Sequelae]
  - Amputation [Recovered/Resolved with Sequelae]
